FAERS Safety Report 4694956-X (Version None)
Quarter: 2005Q2

REPORT INFORMATION
  Report Type: 
  Country: None (occurrence: None)
  Receive Date: 20050617
  Receipt Date: 20040422
  Transmission Date: 20051028
  Serious: Yes (Hospitalization)
  Sender: FDA-Public Use
  Company Number: US-SHR-04-024692

PATIENT
  Age: 62 Year
  Sex: Female
  Weight: 111.6 kg

DRUGS (1)
  1. FLUDARA [Suspect]
     Indication: PROLYMPHOCYTIC LEUKAEMIA
     Dosage: 50 MG QD, 5 DOSES, INTRAVENOUS
     Route: 042
     Dates: start: 20000802, end: 20000806

REACTIONS (2)
  - BLOOD LACTATE DEHYDROGENASE INCREASED [None]
  - HAEMOLYTIC ANAEMIA [None]
